FAERS Safety Report 13496230 (Version 1)
Quarter: 2017Q2

REPORT INFORMATION
  Report Type: Spontaneous
  Country: AU (occurrence: AU)
  Receive Date: 20170428
  Receipt Date: 20170428
  Transmission Date: 20170830
  Serious: Yes (Hospitalization, Congenital Anomaly, Other)
  Sender: FDA-Public Use
  Company Number: AU-VIRTUS PHARMACEUTICALS, LLC-2017VTS00623

PATIENT
  Sex: Female

DRUGS (8)
  1. DIAZEPAM. [Suspect]
     Active Substance: DIAZEPAM
     Dosage: 5-10 MG DAILY
     Route: 063
  2. PIMOZIDE. [Suspect]
     Active Substance: PIMOZIDE
     Dosage: 1-2 MG DAILY
     Route: 064
  3. ALPRAZOLAM. [Suspect]
     Active Substance: ALPRAZOLAM
     Dosage: 1-2 MG DAILY
     Route: 064
  4. TRANYLCYPROMINE [Suspect]
     Active Substance: TRANYLCYPROMINE
     Dosage: 100-120 MG DAILY
     Route: 063
  5. DIAZEPAM. [Suspect]
     Active Substance: DIAZEPAM
     Dosage: 5-10 MG DAILY
     Route: 064
  6. ALPRAZOLAM. [Suspect]
     Active Substance: ALPRAZOLAM
     Dosage: 1-2 MG DAILY
     Route: 063
  7. PIMOZIDE. [Suspect]
     Active Substance: PIMOZIDE
     Dosage: 1-2 MG DAILY
     Route: 063
  8. TRANYLCYPROMINE [Suspect]
     Active Substance: TRANYLCYPROMINE
     Dosage: 100-120 MG DAILY
     Route: 064

REACTIONS (15)
  - Atrioventricular septal defect [Not Recovered/Not Resolved]
  - Foetal exposure during pregnancy [Recovered/Resolved]
  - Cyanosis [Unknown]
  - Hydrocephalus [Unknown]
  - Congenital central nervous system anomaly [Not Recovered/Not Resolved]
  - Abdominal distension [Recovered/Resolved]
  - Drug interaction [Recovered/Resolved]
  - Deafness neurosensory [Unknown]
  - Foetal growth restriction [Recovered/Resolved]
  - Exposure during breast feeding [Recovered/Resolved]
  - Feeding intolerance [Not Recovered/Not Resolved]
  - Abasia [Not Recovered/Not Resolved]
  - Dysmorphism [Not Recovered/Not Resolved]
  - Respiratory distress [Unknown]
  - Developmental delay [Not Recovered/Not Resolved]
